FAERS Safety Report 5306103-1 (Version None)
Quarter: 2007Q2

REPORT INFORMATION
  Report Type: 
  Country: None (occurrence: None)
  Receive Date: 20070424
  Receipt Date: 20061018
  Transmission Date: 20071010
  Serious: Yes (Hospitalization)
  Sender: FDA-Public Use
  Company Number: US-BRISTOL-MYERS SQUIBB COMPANY-13546254

PATIENT
  Age: 88 Year
  Sex: Female
  Weight: 77 kg

DRUGS (3)
  1. CARBOPLATIN [Suspect]
     Indication: OVARIAN CANCER
     Route: 042
     Dates: start: 20061017, end: 20061017
  2. PROTONIX [Concomitant]
  3. ANZEMET [Concomitant]

REACTIONS (1)
  - COMA [None]
